FAERS Safety Report 11441401 (Version 1)
Quarter: 2015Q3

REPORT INFORMATION
  Report Type: Spontaneous
  Country: US (occurrence: US)
  Receive Date: 20150821
  Receipt Date: 20150821
  Transmission Date: 20151125
  Serious: No
  Sender: FDA-Public Use
  Company Number: US-ELI_LILLY_AND_COMPANY-US200807003268

PATIENT
  Age: 49 Year
  Sex: Female

DRUGS (4)
  1. LORAZEPAM. [Concomitant]
     Active Substance: LORAZEPAM
     Indication: INSOMNIA
  2. CYMBALTA [Suspect]
     Active Substance: DULOXETINE HYDROCHLORIDE
     Dosage: 60 MG, DAILY (1/D)
  3. CYMBALTA [Suspect]
     Active Substance: DULOXETINE HYDROCHLORIDE
     Indication: BIPOLAR I DISORDER
     Dosage: 30 MG, DAILY (1/D)
  4. CYMBALTA [Suspect]
     Active Substance: DULOXETINE HYDROCHLORIDE
     Dosage: 120 MG, DAILY (1/D)

REACTIONS (15)
  - Fall [Unknown]
  - Dizziness [Unknown]
  - Visual acuity reduced [Unknown]
  - Muscle spasms [Unknown]
  - Injury [Unknown]
  - Constipation [Not Recovered/Not Resolved]
  - Ear pain [Not Recovered/Not Resolved]
  - Asthenia [Unknown]
  - Drug ineffective [Unknown]
  - Post-traumatic neck syndrome [Unknown]
  - Temporomandibular joint syndrome [Not Recovered/Not Resolved]
  - Nystagmus [Unknown]
  - Balance disorder [Not Recovered/Not Resolved]
  - Arthralgia [Unknown]
  - Nausea [Recovered/Resolved]

NARRATIVE: CASE EVENT DATE: 2008
